FAERS Safety Report 17862401 (Version 6)
Quarter: 2021Q1

REPORT INFORMATION
  Report Type: Spontaneous
  Country: IT (occurrence: IT)
  Receive Date: 20200605
  Receipt Date: 20210310
  Transmission Date: 20210419
  Serious: Yes (Hospitalization, Other)
  Sender: FDA-Public Use
  Company Number: IT-AUROBINDO-AUR-APL-2020-026541

PATIENT
  Age: 18 Year
  Sex: Male
  Weight: 53 kg

DRUGS (4)
  1. AMOXICILLIN / CLAVULANIC ACID 875/125MG FILM?COATED TABLET [Suspect]
     Active Substance: AMOXICILLIN\CLAVULANIC ACID
     Dosage: 875/125 MILLIGRAM, ONCE A DAY
     Route: 048
  2. CLAVULIN [Suspect]
     Active Substance: AMOXICILLIN\CLAVULANATE POTASSIUM
     Dosage: 2 DOSAGE FORM, ONCE A DAY(ONE TABLET TWICE DAILY FOR 10 DAYS)
     Route: 048
  3. AMOXICILLIN / CLAVULANIC ACID 875/125MG FILM?COATED TABLET [Suspect]
     Active Substance: AMOXICILLIN\CLAVULANIC ACID
     Indication: UPPER RESPIRATORY TRACT INFECTION
     Dosage: 1 DOSAGE FORM, TWO TIMES A DAY
     Route: 048
  4. CLAVULIN [Suspect]
     Active Substance: AMOXICILLIN\CLAVULANATE POTASSIUM
     Indication: UPPER RESPIRATORY TRACT INFECTION
     Dosage: UNK UNK, ONCE A DAY, 875/125 MG
     Route: 048

REACTIONS (5)
  - Colitis erosive [Recovered/Resolved]
  - Abdominal pain [Recovered/Resolved]
  - Diarrhoea [Recovered/Resolved]
  - Colitis ulcerative [Recovered/Resolved]
  - Colitis ischaemic [Recovered/Resolved]

NARRATIVE: CASE EVENT DATE: 20190122
